FAERS Safety Report 7540751-3 (Version None)
Quarter: 2011Q2

REPORT INFORMATION
  Report Type: 
  Country: None (occurrence: None)
  Receive Date: 20110610
  Receipt Date: 20110606
  Transmission Date: 20111010
  Serious: Yes (Death, Other)
  Sender: FDA-Public Use
  Company Number: CH-ROCHE-780786

PATIENT

DRUGS (3)
  1. DOXORUBICIN HCL [Suspect]
     Route: 065
  2. IRINOTECAN HYDROCHLORIDE [Suspect]
     Route: 065
  3. BEVACIZUMAB [Suspect]
     Route: 065

REACTIONS (7)
  - IMPAIRED HEALING [None]
  - PALMAR-PLANTAR ERYTHRODYSAESTHESIA SYNDROME [None]
  - PROTEINURIA [None]
  - EMBOLISM [None]
  - HAEMORRHAGIC STROKE [None]
  - HAEMORRHAGE [None]
  - DIARRHOEA [None]
